FAERS Safety Report 19287875 (Version 6)
Quarter: 2023Q1

REPORT INFORMATION
  Report Type: Report from Study
  Country: CA (occurrence: CA)
  Receive Date: 20210521
  Receipt Date: 20230127
  Transmission Date: 20230418
  Serious: Yes (Death, Hospitalization)
  Sender: FDA-Public Use
  Company Number: CA-OTSUKA-2021_001695

PATIENT
  Age: 85 Year
  Sex: Male

DRUGS (3)
  1. CEDAZURIDINE\DECITABINE [Suspect]
     Active Substance: CEDAZURIDINE\DECITABINE
     Indication: Chronic myelomonocytic leukaemia
     Dosage: (35 MG DECITABINE AND 100 MG CEDAZURIDINE) 3 TABLETS
     Route: 065
     Dates: start: 20201203
  2. CEDAZURIDINE\DECITABINE [Suspect]
     Active Substance: CEDAZURIDINE\DECITABINE
     Dosage: (35 MG DECITABINE AND 100 MG CEDAZURIDINE) 3 TABLETS (ON DAYS 1, 3, AND 5)
     Route: 065
     Dates: start: 202104
  3. CEDAZURIDINE\DECITABINE [Suspect]
     Active Substance: CEDAZURIDINE\DECITABINE
     Dosage: 1 DF, QD (ON DAYS 1, 2, AND 3)
     Route: 065

REACTIONS (5)
  - Death [Fatal]
  - Infrequent bowel movements [Unknown]
  - Pneumonia [Unknown]
  - Splenomegaly [Unknown]
  - Product use issue [Unknown]

NARRATIVE: CASE EVENT DATE: 20230116
